FAERS Safety Report 9458579 (Version 3)
Quarter: 2013Q4

REPORT INFORMATION
  Report Type: Spontaneous
  Country: US (occurrence: US)
  Receive Date: 20130814
  Receipt Date: 20131120
  Transmission Date: 20140711
  Serious: Yes (Death, Life-Threatening, Hospitalization, Other)
  Sender: FDA-Public Use
  Company Number: US-GILEAD-2013-0077436

PATIENT
  Age: 65 Year
  Sex: 0
  Weight: 106.12 kg

DRUGS (9)
  1. LETAIRIS [Suspect]
     Indication: PULMONARY ARTERIAL HYPERTENSION
     Dosage: 5 MG, QD
     Dates: start: 20130523, end: 20130609
  2. VIAGRA [Concomitant]
     Indication: PULMONARY ARTERIAL HYPERTENSION
     Dosage: 25
     Route: 048
     Dates: end: 20130808
  3. EPOPROSTENOL [Concomitant]
     Indication: PULMONARY ARTERIAL HYPERTENSION
     Dosage: 45NG/KG/MIN
     Route: 042
     Dates: end: 20130808
  4. SYMBICORT [Concomitant]
     Indication: ASTHMA
     Dosage: 160/4.5
     Route: 055
     Dates: end: 20130808
  5. CITALOPRAM [Concomitant]
     Indication: DEPRESSION
     Dosage: 40 MG, UNK
     Route: 048
     Dates: end: 20130808
  6. FUROSEMIDE [Concomitant]
     Indication: PULMONARY ARTERIAL HYPERTENSION
     Dosage: 40 MG, UNK
     Route: 048
     Dates: end: 20130808
  7. GABAPENTIN [Concomitant]
     Indication: NEUROPATHY PERIPHERAL
     Dosage: 800 MG, UNK
     Route: 048
     Dates: end: 20130808
  8. NORCO [Concomitant]
     Indication: NEUROPATHY PERIPHERAL
     Dosage: 5/325
     Route: 048
     Dates: end: 20130808
  9. LOSARTAN [Concomitant]
     Indication: HYPERTENSION
     Dosage: 100 MG, UNK
     Route: 048
     Dates: end: 20130808

REACTIONS (4)
  - Pulmonary arterial hypertension [Fatal]
  - Swelling [Not Recovered/Not Resolved]
  - Dyspnoea [Not Recovered/Not Resolved]
  - Drug ineffective [Unknown]
